FAERS Safety Report 17107304 (Version 2)
Quarter: 2019Q4

REPORT INFORMATION
  Report Type: Spontaneous
  Country: FR (occurrence: FR)
  Receive Date: 20191203
  Receipt Date: 20191219
  Transmission Date: 20200122
  Serious: Yes (Hospitalization)
  Sender: FDA-Public Use
  Company Number: FR-MYLANLABS-2019M1116292

PATIENT
  Sex: Male

DRUGS (4)
  1. SUFENTANIL                         /00723502/ [Concomitant]
     Active Substance: SUFENTANIL CITRATE
     Dosage: UNK
  2. MORPHINE                           /00036303/ [Concomitant]
     Active Substance: MORPHINE HYDROCHLORIDE
     Dosage: UNK
  3. BUPIVACAINE MYLAN [Suspect]
     Active Substance: BUPIVACAINE
     Dosage: 10 MILLIGRAM, TOTAL
     Route: 037
     Dates: start: 201906, end: 201906
  4. BUPIVACAINE MYLAN [Suspect]
     Active Substance: BUPIVACAINE
     Indication: ANAESTHESIA
     Dosage: UNK
     Route: 024
     Dates: start: 201906

REACTIONS (1)
  - Drug ineffective [Recovered/Resolved]

NARRATIVE: CASE EVENT DATE: 20190606
